FAERS Safety Report 8366602-5 (Version None)
Quarter: 2012Q2

REPORT INFORMATION
  Report Type: 
  Country: None (occurrence: None)
  Receive Date: 20120517
  Receipt Date: 20120514
  Transmission Date: 20120825
  Serious: Yes (Hospitalization)
  Sender: FDA-Public Use
  Company Number: US-PFIZER INC-2012066424

PATIENT
  Sex: Male

DRUGS (7)
  1. NIACIN [Concomitant]
     Dosage: UNK
  2. METFORMIN HYDROCHLORIDE [Concomitant]
     Dosage: UNK
     Dates: end: 20110329
  3. GLUCOTROL [Suspect]
     Indication: DIABETES MELLITUS
     Dosage: 5 MG, UNK
     Route: 065
     Dates: start: 20111127
  4. ACETYLSALICYLIC ACID [Concomitant]
     Dosage: UNK
  5. BLINDED THERAPY [Suspect]
     Indication: TYPE 2 DIABETES MELLITUS
     Dosage: UNK
     Route: 065
     Dates: start: 20110329
  6. PIOGLITAZONE [Suspect]
     Indication: TYPE 2 DIABETES MELLITUS
     Dosage: 30 MG, UNK
     Route: 065
     Dates: start: 20110512
  7. AMIODARONE HCL [Suspect]
     Indication: VENTRICULAR TACHYCARDIA
     Dosage: UNK
     Route: 065
     Dates: start: 20111231

REACTIONS (2)
  - ATRIAL FIBRILLATION [None]
  - ISCHAEMIC CARDIOMYOPATHY [None]
